FAERS Safety Report 4289800-9 (Version None)
Quarter: 2004Q1

REPORT INFORMATION
  Report Type: 
  Country: None (occurrence: None)
  Receive Date: 20040210
  Receipt Date: 20040129
  Transmission Date: 20041129
  Serious: Yes (Hospitalization)
  Sender: FDA-Public Use
  Company Number: IT-GLAXOSMITHKLINE-B0321666A

PATIENT
  Age: 9 Year
  Sex: Male

DRUGS (3)
  1. 1592U89 (ABACAVIR) [Suspect]
     Indication: HIV INFECTION
     Dosage: 8.7ML TWICE PER DAY
     Route: 048
     Dates: start: 20031227, end: 20040122
  2. EFAVIRENZ [Concomitant]
     Indication: HIV INFECTION
     Dosage: 300MG PER DAY
     Route: 048
     Dates: start: 20031227, end: 20040128
  3. LAMIVUDINE [Concomitant]
     Indication: HIV INFECTION
     Dosage: 17.4ML PER DAY
     Route: 048
     Dates: start: 20031227, end: 20040118

REACTIONS (3)
  - PYREXIA [None]
  - RASH MACULO-PAPULAR [None]
  - TONSILLITIS [None]
